FAERS Safety Report 13690809 (Version 5)
Quarter: 2018Q1

REPORT INFORMATION
  Report Type: Spontaneous
  Country: US (occurrence: US)
  Receive Date: 20170626
  Receipt Date: 20180124
  Transmission Date: 20180508
  Serious: Yes (Other)
  Sender: FDA-Public Use
  Company Number: US-CLOVIS ONCOLOGY-CLO-2017-000294

PATIENT
  Age: 61 Year
  Sex: Female

DRUGS (2)
  1. RUBRACA [Suspect]
     Active Substance: RUCAPARIB CAMSYLATE
     Indication: OVARIAN CANCER
     Dosage: 600 MG, BID
     Route: 048
     Dates: start: 20170404
  2. ZOFRAN [Concomitant]
     Active Substance: ONDANSETRON HYDROCHLORIDE
     Indication: PRODUCT USED FOR UNKNOWN INDICATION
     Dosage: 8 MG, ODT, Q8H PRN

REACTIONS (13)
  - Renal impairment [Recovering/Resolving]
  - Blister [Recovered/Resolved]
  - Hepatic enzyme increased [Not Recovered/Not Resolved]
  - Somnolence [Unknown]
  - Erythema [Not Recovered/Not Resolved]
  - Drug dose omission [Unknown]
  - Skin abrasion [Not Recovered/Not Resolved]
  - Dysgeusia [Recovering/Resolving]
  - Fatigue [Recovered/Resolved]
  - Pallor [Not Recovered/Not Resolved]
  - Limb discomfort [Unknown]
  - Alopecia [Not Recovered/Not Resolved]
  - Nausea [Recovered/Resolved]

NARRATIVE: CASE EVENT DATE: 2017
